FAERS Safety Report 6804747-9 (Version None)
Quarter: 2010Q2

REPORT INFORMATION
  Report Type: 
  Country: None (occurrence: None)
  Receive Date: 20100628
  Receipt Date: 20070520
  Transmission Date: 20101027
  Serious: No
  Sender: FDA-Public Use
  Company Number: US-PFIZER INC-2007040466

PATIENT
  Sex: Female
  Weight: 102 kg

DRUGS (1)
  1. GEODON [Suspect]
     Indication: BIPOLAR I DISORDER
     Dates: start: 20070519, end: 20070520

REACTIONS (2)
  - DISCOMFORT [None]
  - INSOMNIA [None]
